FAERS Safety Report 9861925 (Version 1)
Quarter: 2014Q1

REPORT INFORMATION
  Report Type: Spontaneous
  Country: GB (occurrence: GB)
  Receive Date: 20140203
  Receipt Date: 20140203
  Transmission Date: 20141002
  Serious: Yes (Hospitalization, Other)
  Sender: FDA-Public Use
  Company Number: GB-JNJFOC-20140115662

PATIENT
  Sex: 0

DRUGS (2)
  1. NIZORAL [Suspect]
     Route: 065
  2. NIZORAL [Suspect]
     Indication: CUSHING^S SYNDROME
     Route: 065

REACTIONS (2)
  - Cushing^s syndrome [Unknown]
  - Off label use [Unknown]
